FAERS Safety Report 5897833-1 (Version None)
Quarter: 2008Q3

REPORT INFORMATION
  Report Type: 
  Country: None (occurrence: None)
  Receive Date: 20080924
  Receipt Date: 20080924
  Transmission Date: 20090109
  Serious: Yes (Life-Threatening)
  Sender: FDA-Public Use
  Company Number: None

PATIENT
  Sex: Female
  Weight: 60 kg

DRUGS (3)
  1. CLOFARABINE [Suspect]
     Indication: NON-HODGKIN'S LYMPHOMA
     Dosage: 40MG/M2 DAILY IV DRIP
     Route: 041
     Dates: start: 20080917, end: 20080921
  2. MELPHALAN [Suspect]
     Dosage: DOSE HELD
  3. CAMPATH [Concomitant]

REACTIONS (6)
  - ASTHENIA [None]
  - CONFUSIONAL STATE [None]
  - PYREXIA [None]
  - RENAL FAILURE ACUTE [None]
  - RESPIRATORY DISORDER [None]
  - SEPSIS [None]
